FAERS Safety Report 5744288-3 (Version None)
Quarter: 2008Q2

REPORT INFORMATION
  Report Type: 
  Country: None (occurrence: None)
  Receive Date: 20080516
  Receipt Date: 20080516
  Transmission Date: 20081010
  Serious: Yes (Life-Threatening, Hospitalization, Other)
  Sender: FDA-Public Use
  Company Number: None

PATIENT
  Age: 78 Year
  Sex: Female
  Weight: 61.6892 kg

DRUGS (3)
  1. CHANTIX [Suspect]
     Indication: SMOKING CESSATION THERAPY
     Dosage: 05 MG 1 DAILY/ 11DAYS PO
     Route: 048
     Dates: start: 20071012, end: 20071022
  2. CHANTIX [Suspect]
     Indication: SMOKING CESSATION THERAPY
     Dosage: 05 MG 1 DAILY/ 11DAYS PO
     Route: 048
     Dates: start: 20071023, end: 20071111
  3. CHANTIX [Concomitant]

REACTIONS (18)
  - ACTIVITIES OF DAILY LIVING IMPAIRED [None]
  - APATHY [None]
  - ARTHRALGIA [None]
  - BACK PAIN [None]
  - BEDRIDDEN [None]
  - CONSTIPATION [None]
  - DEPRESSION [None]
  - DIARRHOEA [None]
  - DISSOCIATION [None]
  - FATIGUE [None]
  - GASTRIC DISORDER [None]
  - HYPERSOMNIA [None]
  - MENTAL STATUS CHANGES [None]
  - MUSCLE ATROPHY [None]
  - NAUSEA [None]
  - PAIN IN EXTREMITY [None]
  - PERSONALITY CHANGE [None]
  - SOMNOLENCE [None]
